FAERS Safety Report 18512723 (Version 1)
Quarter: 2020Q4

REPORT INFORMATION
  Report Type: Spontaneous
  Country: FR (occurrence: FR)
  Receive Date: 20201117
  Receipt Date: 20201117
  Transmission Date: 20210114
  Serious: Yes (Other)
  Sender: FDA-Public Use
  Company Number: FR-MYLANLABS-2020M1094237

PATIENT
  Age: 69 Year
  Sex: Female

DRUGS (13)
  1. CITALOPRAM [Concomitant]
     Active Substance: CITALOPRAM HYDROBROMIDE
     Indication: DEPRESSION
     Dosage: UNK
     Route: 065
  2. EVEROLIMUS. [Suspect]
     Active Substance: EVEROLIMUS
     Indication: LUNG TRANSPLANT
     Dosage: 1.25 MILLIGRAM, BID 1.25 MILLIGRAM, BID
     Route: 065
  3. ENVARSUS XR [Interacting]
     Active Substance: TACROLIMUS
     Indication: IMMUNOSUPPRESSANT DRUG THERAPY
     Dosage: 1 MILLIGRAM, QD
     Route: 065
  4. PREDNISONE. [Suspect]
     Active Substance: PREDNISONE
     Indication: LUNG TRANSPLANT
     Dosage: UNK
  5. ENVARSUS XR [Interacting]
     Active Substance: TACROLIMUS
     Indication: LUNG TRANSPLANT REJECTION
     Dosage: UNK
  6. LOPINAVIR/RITONAVIR [Interacting]
     Active Substance: LOPINAVIR\RITONAVIR
     Indication: IMMUNOSUPPRESSANT DRUG THERAPY
     Dosage: 8 DOSES
     Route: 065
  7. MONTELUKAST [Concomitant]
     Active Substance: MONTELUKAST SODIUM
     Indication: HYPERTENSION
     Dosage: UNK
     Route: 065
  8. AZITHROMYCIN ANHYDROUS. [Concomitant]
     Active Substance: AZITHROMYCIN ANHYDROUS
     Indication: HYPERTENSION
     Dosage: UNK
  9. PREDNISONE. [Suspect]
     Active Substance: PREDNISONE
     Indication: IMMUNOSUPPRESSANT DRUG THERAPY
     Dosage: 5 MILLIGRAM, QD
     Route: 065
  10. MONTELUKAST [Concomitant]
     Active Substance: MONTELUKAST SODIUM
     Indication: PROPHYLAXIS AGAINST TRANSPLANT REJECTION
     Dosage: UNK
     Route: 065
  11. AZITHROMYCIN ANHYDROUS. [Concomitant]
     Active Substance: AZITHROMYCIN ANHYDROUS
     Indication: PROPHYLAXIS AGAINST TRANSPLANT REJECTION
     Dosage: UNK
     Route: 065
  12. EVEROLIMUS. [Interacting]
     Active Substance: EVEROLIMUS
     Indication: IMMUNOSUPPRESSANT DRUG THERAPY
     Dosage: UNK
  13. LOPINAVIR/RITONAVIR [Interacting]
     Active Substance: LOPINAVIR\RITONAVIR
     Indication: COVID-19
     Dosage: UNK

REACTIONS (9)
  - Drug interaction [Recovered/Resolved]
  - Lung infiltration [Recovered/Resolved]
  - Immunosuppressant drug level increased [Unknown]
  - Tremor [Recovered/Resolved]
  - Off label use [Unknown]
  - SARS-CoV-2 test positive [Recovered/Resolved]
  - Diarrhoea [Recovered/Resolved]
  - Product use in unapproved indication [Unknown]
  - Vomiting [Recovered/Resolved]

NARRATIVE: CASE EVENT DATE: 202003
